FAERS Safety Report 5785945-2 (Version None)
Quarter: 2008Q2

REPORT INFORMATION
  Report Type: 
  Country: None (occurrence: None)
  Receive Date: 20080620
  Receipt Date: 20080620
  Transmission Date: 20081010
  Serious: No
  Sender: FDA-Public Use
  Company Number: None

PATIENT
  Sex: Male
  Weight: 65.7716 kg

DRUGS (1)
  1. FLONASE [Suspect]
     Indication: SEASONAL ALLERGY
     Dosage: ABOUT 14 YEARS

REACTIONS (2)
  - OSTEOPENIA [None]
  - OSTEOPOROSIS [None]
